FAERS Safety Report 16487901 (Version 1)
Quarter: 2019Q2

REPORT INFORMATION
  Report Type: Spontaneous
  Country: US (occurrence: US)
  Receive Date: 20190627
  Receipt Date: 20190627
  Transmission Date: 20190711
  Serious: No
  Sender: FDA-Public Use
  Company Number: US-009507513-1811USA010783

PATIENT
  Sex: Female

DRUGS (5)
  1. FOLLISTIM AQ [Suspect]
     Active Substance: FOLLITROPIN
     Indication: ASSISTED FERTILISATION
     Dosage: 150 INTERNATIONAL UNIT, FREQUENCY: AS DIRECTED
     Route: 058
     Dates: start: 20180112
  2. LEUPROLIDE [Suspect]
     Active Substance: LEUPROLIDE
  3. LETROZOLE. [Concomitant]
     Active Substance: LETROZOLE
  4. MENOPUR [Concomitant]
     Active Substance: FOLLITROPIN\LUTEINIZING HORMONE
  5. DOXYCYCLINE. [Concomitant]
     Active Substance: DOXYCYCLINE

REACTIONS (1)
  - Contusion [Unknown]
